FAERS Safety Report 7611118-4 (Version None)
Quarter: 2011Q3

REPORT INFORMATION
  Report Type: 
  Country: None (occurrence: None)
  Receive Date: 20110715
  Receipt Date: 20110712
  Transmission Date: 20111222
  Serious: Yes (Hospitalization)
  Sender: FDA-Public Use
  Company Number: US-SANOFI-AVENTIS-2010SA063701

PATIENT
  Age: 65 Year
  Sex: Female
  Weight: 78.47 kg

DRUGS (4)
  1. COUMADIN [Concomitant]
     Indication: ATRIAL FIBRILLATION
     Dosage: 2.5 MG / 5 MG DAILY
  2. LANOXIN [Concomitant]
     Indication: ATRIAL FIBRILLATION
  3. METOPROLOL TARTRATE [Concomitant]
     Indication: ATRIAL FIBRILLATION
  4. MULTAQ [Suspect]
     Indication: ATRIAL FIBRILLATION
     Route: 048
     Dates: start: 20100930, end: 20101010

REACTIONS (6)
  - PERICARDIAL EFFUSION [None]
  - SEROSITIS [None]
  - WEIGHT DECREASED [None]
  - NAUSEA [None]
  - HEPATIC ENZYME INCREASED [None]
  - PLEURAL EFFUSION [None]
